FAERS Safety Report 4317082-8 (Version None)
Quarter: 2004Q1

REPORT INFORMATION
  Report Type: 
  Country: None (occurrence: None)
  Receive Date: 20040312
  Receipt Date: 20040223
  Transmission Date: 20041129
  Serious: Yes (Hospitalization, Other)
  Sender: FDA-Public Use
  Company Number: 04-061-0161

PATIENT
  Age: 10 Year
  Sex: Female

DRUGS (1)
  1. CYTARABINE [Suspect]
     Indication: LEUKAEMIA
     Dosage: HIGH DOSE CYTARABINE
     Dates: start: 20040208, end: 20040209

REACTIONS (2)
  - BLINDNESS [None]
  - OPTIC NERVE INJURY [None]
